FAERS Safety Report 8417700-9 (Version None)
Quarter: 2012Q2

REPORT INFORMATION
  Report Type: 
  Country: None (occurrence: None)
  Receive Date: 20120607
  Receipt Date: 20120526
  Transmission Date: 20120825
  Serious: Yes (Death, Hospitalization)
  Sender: FDA-Public Use
  Company Number: US-PAR PHARMACEUTICAL, INC-2012SCPR004428

PATIENT

DRUGS (4)
  1. DIVALPROEX SODIUM EXTENDED RELEASE [Suspect]
     Indication: PRODUCT USED FOR UNKNOWN INDICATION
     Dosage: UNK, UNKNOWN
     Route: 065
  2. LEVETIRACETAM [Concomitant]
     Indication: CONVULSION
     Dosage: UNK, UNKNOWN
     Route: 065
  3. DIVALPROEX SODIUM EXTENDED RELEASE [Suspect]
     Dosage: 500 MG, BID
     Route: 065
  4. LORAZEPAM [Concomitant]
     Indication: CONVULSION
     Dosage: UNK, UNKNOWN
     Route: 065

REACTIONS (4)
  - BRAIN OEDEMA [None]
  - HEPATOTOXICITY [None]
  - DEATH [None]
  - BRAIN HERNIATION [None]
